FAERS Safety Report 9623148 (Version 1)
Quarter: 2013Q4

REPORT INFORMATION
  Report Type: Spontaneous
  Country: US (occurrence: US)
  Receive Date: 20131015
  Receipt Date: 20131015
  Transmission Date: 20140711
  Serious: No
  Sender: FDA-Public Use
  Company Number: US-PURDUE-USA-2012-0088319

PATIENT
  Sex: Female
  Weight: 81.63 kg

DRUGS (1)
  1. BUTRANS [Suspect]
     Indication: PAIN
     Dosage: 20 MCG/HR, UNK
     Route: 062
     Dates: start: 20120315

REACTIONS (3)
  - Balance disorder [Unknown]
  - Dizziness [Unknown]
  - Wrong technique in drug usage process [Unknown]
